FAERS Safety Report 6221538-0 (Version None)
Quarter: 2009Q2

REPORT INFORMATION
  Report Type: 
  Country: None (occurrence: None)
  Receive Date: 20090610
  Receipt Date: 20090605
  Transmission Date: 20091009
  Serious: Yes (Death, Hospitalization, Disabling)
  Sender: FDA-Public Use
  Company Number: PHHY2009JP12035

PATIENT
  Sex: Male

DRUGS (8)
  1. ICL670A ICL+DISTAB [Suspect]
     Indication: CHRONIC MYELOID LEUKAEMIA
     Dosage: 250 MG/DAY
     Route: 048
     Dates: start: 20081202, end: 20090113
  2. DEXAMETHASONE [Concomitant]
     Indication: CHRONIC LYMPHOCYTIC LEUKAEMIA
     Dosage: 2 MG, UNK
     Route: 048
     Dates: start: 20081201, end: 20090113
  3. BAKTAR [Concomitant]
     Dosage: 2 G, UNK
     Route: 048
     Dates: start: 20081201, end: 20090113
  4. GASTER D [Concomitant]
     Dosage: 20 MG, UNK
     Route: 048
     Dates: start: 20081201, end: 20090113
  5. FUROSEMIDE [Concomitant]
     Dosage: 40 MG, UNK
     Route: 048
     Dates: start: 20081201, end: 20090113
  6. SPIRONOLACTONE [Concomitant]
     Dosage: 25 MG, UNK
     Route: 048
     Dates: start: 20081201, end: 20090113
  7. BIO THREE [Concomitant]
     Dosage: 3 DF, UNK
     Route: 048
     Dates: start: 20081201, end: 20090113
  8. DESFERAL [Concomitant]
     Dosage: UNK
     Route: 030
     Dates: start: 20080428, end: 20081121

REACTIONS (19)
  - ALANINE AMINOTRANSFERASE INCREASED [None]
  - ASPARTATE AMINOTRANSFERASE DECREASED [None]
  - BLOOD ALKALINE PHOSPHATASE INCREASED [None]
  - BLOOD BILIRUBIN INCREASED [None]
  - BLOOD CREATININE INCREASED [None]
  - BLOOD LACTATE DEHYDROGENASE DECREASED [None]
  - BLOOD UREA INCREASED [None]
  - CHRONIC MYELOID LEUKAEMIA [None]
  - DECREASED APPETITE [None]
  - EOSINOPHIL COUNT DECREASED [None]
  - GAMMA-GLUTAMYLTRANSFERASE DECREASED [None]
  - HAEMATOCRIT DECREASED [None]
  - HAEMOGLOBIN DECREASED [None]
  - LYMPHOCYTE COUNT DECREASED [None]
  - MALIGNANT NEOPLASM PROGRESSION [None]
  - NEUTROPHIL COUNT DECREASED [None]
  - PLATELET COUNT DECREASED [None]
  - RED BLOOD CELL COUNT DECREASED [None]
  - RENAL DISORDER [None]
